FAERS Safety Report 9678039 (Version 1)
Quarter: 2013Q4

REPORT INFORMATION
  Report Type: Spontaneous
  Country: GB (occurrence: GB)
  Receive Date: 20131108
  Receipt Date: 20131108
  Transmission Date: 20140711
  Serious: Yes (Disabling)
  Sender: FDA-Public Use
  Company Number: GB-TEVA-442129ISR

PATIENT
  Age: 22 Year
  Sex: Female

DRUGS (4)
  1. ERYTHROMYCIN [Suspect]
     Indication: ACNE
  2. OXYTETRACYCLINE [Suspect]
     Indication: ACNE
  3. LYMECYCLINE [Suspect]
     Indication: ACNE
  4. MICROGYNON [Concomitant]
     Indication: CONTRACEPTION

REACTIONS (3)
  - Interstitial lung disease [Not Recovered/Not Resolved]
  - Bullous lung disease [Unknown]
  - Dyspnoea exertional [Unknown]
